FAERS Safety Report 16140122 (Version 1)
Quarter: 2019Q2

REPORT INFORMATION
  Report Type: Spontaneous
  Country: US (occurrence: US)
  Receive Date: 20190401
  Receipt Date: 20190401
  Transmission Date: 20190711
  Serious: No
  Sender: FDA-Public Use
  Company Number: US-DRREDDYS-USA/USA/19/0109045

PATIENT
  Sex: Female

DRUGS (1)
  1. SILVER SULFADIAZINE. [Suspect]
     Active Substance: SILVER SULFADIAZINE
     Indication: THERMAL BURN
     Route: 061
     Dates: start: 20190309

REACTIONS (6)
  - Application site irritation [Unknown]
  - Application site pruritus [Unknown]
  - Pain [Unknown]
  - Pain of skin [Unknown]
  - Application site erythema [Not Recovered/Not Resolved]
  - Skin burning sensation [Unknown]

NARRATIVE: CASE EVENT DATE: 20190309
